FAERS Safety Report 14440994 (Version 1)
Quarter: 2018Q1

REPORT INFORMATION
  Report Type: Spontaneous
  Country: FR (occurrence: FR)
  Receive Date: 20180125
  Receipt Date: 20180125
  Transmission Date: 20180509
  Serious: Yes (Hospitalization)
  Sender: FDA-Public Use
  Company Number: PHHY2018FR010918

PATIENT
  Age: 52 Year
  Sex: Male
  Weight: 63.5 kg

DRUGS (7)
  1. TAZOCILLINE [Suspect]
     Active Substance: PIPERACILLIN SODIUM\TAZOBACTAM SODIUM
     Indication: INFECTION
     Dosage: 4 G, UNK
     Route: 042
     Dates: start: 20171121, end: 20171130
  2. VANCOMYCINE [Concomitant]
     Active Substance: VANCOMYCIN
     Indication: PYREXIA
     Dosage: 1500 MG, UNK
     Route: 042
     Dates: start: 20171130, end: 20171201
  3. AXEPIM [Concomitant]
     Active Substance: CEFEPIME HYDROCHLORIDE
     Indication: PYREXIA
     Dosage: 2 G, UNK
     Route: 041
     Dates: start: 20171130
  4. ZARZIO [Suspect]
     Active Substance: FILGRASTIM
     Indication: NEUTROPENIA
     Dosage: 30 MIU, UNK
     Route: 058
     Dates: start: 20171123, end: 20171202
  5. CYTARABINE. [Suspect]
     Active Substance: CYTARABINE
     Indication: ACUTE MYELOID LEUKAEMIA
     Dosage: 500 MG/M2, UNK
     Route: 042
     Dates: start: 20171123, end: 20171125
  6. DAUNORUBICINE [Suspect]
     Active Substance: DAUNORUBICIN
     Indication: ACUTE MYELOID LEUKAEMIA
     Dosage: 60 MG/M2, UNK
     Route: 042
     Dates: start: 20171123, end: 20171125
  7. ROVAMYCINE [Suspect]
     Active Substance: SPIRAMYCIN
     Indication: INFECTION
     Dosage: UNK
     Route: 042

REACTIONS (1)
  - Cerebellar syndrome [Recovered/Resolved]

NARRATIVE: CASE EVENT DATE: 20171129
